FAERS Safety Report 7407529-2 (Version None)
Quarter: 2011Q2

REPORT INFORMATION
  Report Type: 
  Country: None (occurrence: None)
  Receive Date: 20110412
  Receipt Date: 20110405
  Transmission Date: 20111010
  Serious: Yes (Hospitalization)
  Sender: FDA-Public Use
  Company Number: US-BIOGENIDEC-2011BI013078

PATIENT
  Age: 46 Year
  Sex: Female

DRUGS (1)
  1. AVONEX [Suspect]
     Indication: MULTIPLE SCLEROSIS
     Route: 030
     Dates: start: 20020911

REACTIONS (6)
  - BONE DISORDER [None]
  - MULTIPLE SCLEROSIS RELAPSE [None]
  - BOWEL MOVEMENT IRREGULARITY [None]
  - HYPERTENSION [None]
  - DIABETES MELLITUS [None]
  - MUSCLE DISORDER [None]
